FAERS Safety Report 25589034 (Version 1)
Quarter: 2025Q3

REPORT INFORMATION
  Report Type: Spontaneous
  Country: US (occurrence: US)
  Receive Date: 20250722
  Receipt Date: 20250722
  Transmission Date: 20251021
  Serious: Yes (Death, Life-Threatening, Hospitalization)
  Sender: ACCORD
  Company Number: US-AstraZeneca-2017SE54410

PATIENT
  Age: 65 Year
  Sex: Female

DRUGS (8)
  1. LACOSAMIDE [Suspect]
     Active Substance: LACOSAMIDE
     Indication: Meningitis
  2. LEVETIRACETAM [Suspect]
     Active Substance: LEVETIRACETAM
     Indication: Status epilepticus
  3. FOSPHENYTOIN [Suspect]
     Active Substance: FOSPHENYTOIN
     Indication: Status epilepticus
  4. MIDAZOLAM [Suspect]
     Active Substance: MIDAZOLAM
     Indication: Status epilepticus
  5. PHENOBARBITAL [Suspect]
     Active Substance: PHENOBARBITAL
     Indication: Status epilepticus
  6. PROPOFOL [Suspect]
     Active Substance: PROPOFOL
     Indication: Status epilepticus
  7. ATIVAN [Concomitant]
     Active Substance: LORAZEPAM
     Indication: Status epilepticus
  8. LACOSAMIDE [Suspect]
     Active Substance: LACOSAMIDE
     Indication: Evidence based treatment

REACTIONS (4)
  - Cardiac arrest [Fatal]
  - Myocardial depression [Fatal]
  - Atrioventricular block [Fatal]
  - Off label use [Unknown]
